FAERS Safety Report 17039845 (Version 1)
Quarter: 2019Q4

REPORT INFORMATION
  Report Type: Report from Study
  Country: None (occurrence: US)
  Receive Date: 20191116
  Receipt Date: 20191116
  Transmission Date: 20200122
  Serious: Yes (Death)
  Sender: FDA-Public Use
  Company Number: US-ABBVIE-19K-163-3002535-00

PATIENT
  Age: 69 Year
  Sex: Male

DRUGS (2)
  1. VENCLEXTA [Suspect]
     Active Substance: VENETOCLAX
     Indication: HAEMOCHROMATOSIS
     Route: 048
     Dates: start: 20190624, end: 2019
  2. VENCLEXTA [Suspect]
     Active Substance: VENETOCLAX
     Indication: REFRACTORY ANAEMIA WITH RINGED SIDEROBLASTS

REACTIONS (2)
  - Death [Fatal]
  - Off label use [Unknown]

NARRATIVE: CASE EVENT DATE: 20190624
